FAERS Safety Report 19575559 (Version 1)
Quarter: 2021Q3

REPORT INFORMATION
  Report Type: Spontaneous
  Country: CN (occurrence: CN)
  Receive Date: 20210719
  Receipt Date: 20210719
  Transmission Date: 20211014
  Serious: Yes (Hospitalization)
  Sender: FDA-Public Use
  Company Number: CN-DRREDDYS-OTH/CHN/21/0137935

PATIENT
  Age: 89 Year
  Sex: Male
  Weight: 60 kg

DRUGS (8)
  1. YURI CLINTON FOR INJECTION [Concomitant]
     Indication: CEREBRAL INFARCTION
     Dosage: 1.000000A PIECE OF,QD
     Route: 041
     Dates: start: 20210625, end: 20210708
  2. VALSARTAN AMLODIPINE TABLETS (I) [Concomitant]
     Indication: HYPERTENSION
     Dosage: 1.000000TABLET,QD
     Route: 048
     Dates: start: 20210627, end: 20210709
  3. ATORVASTATIN CALCIUM TABLETS [Concomitant]
     Active Substance: ATORVASTATIN CALCIUM
     Indication: ARTERIOSCLEROSIS
     Dosage: 20.00000MG,QD
     Route: 048
     Dates: start: 20210625, end: 20210709
  4. SODIUM CHLORIDE INJECTION [Concomitant]
     Active Substance: SODIUM CHLORIDE
     Indication: VEHICLE SOLUTION USE
     Dosage: 250.0000ML,QD
     Route: 041
     Dates: start: 20210625, end: 20210708
  5. PANTOPRAZOLE [Suspect]
     Active Substance: PANTOPRAZOLE
     Indication: GASTRITIS
     Dosage: 40.000000MG,QD
     Route: 048
     Dates: start: 20210702, end: 20210708
  6. SODIUM CHLORIDE INJECTION [Concomitant]
     Active Substance: SODIUM CHLORIDE
     Indication: VEHICLE SOLUTION USE
     Dosage: 100.0000ML,BID
     Route: 041
     Dates: start: 20210628, end: 20210706
  7. ASPIRIN ENTERIC?COATED TABLETS [Suspect]
     Active Substance: ASPIRIN
     Indication: THROMBOSIS
     Dosage: 100.000000MG,QD
     Route: 048
     Dates: start: 20210625, end: 20210629
  8. CEFOPERAZONE SODIUM AND SULBACTAM SODIUM FOR INJECTION [Concomitant]
     Indication: INFECTION
     Dosage: 3.000000G,BID
     Route: 041
     Dates: start: 20210628, end: 20210706

REACTIONS (1)
  - Gouty arthritis [Recovering/Resolving]

NARRATIVE: CASE EVENT DATE: 20210703
